FAERS Safety Report 12765202 (Version 1)
Quarter: 2016Q3

REPORT INFORMATION
  Report Type: Spontaneous
  Country: US (occurrence: US)
  Receive Date: 20160921
  Receipt Date: 20160921
  Transmission Date: 20161109
  Serious: No
  Sender: FDA-Public Use
  Company Number: US-TEVA-692780USA

PATIENT
  Age: 51 Year
  Sex: Female

DRUGS (1)
  1. COPAXONE [Suspect]
     Active Substance: GLATIRAMER ACETATE
     Indication: MULTIPLE SCLEROSIS
     Dosage: 20 MILLIGRAM/MILLILITERS DAILY;
     Route: 058
     Dates: start: 201304

REACTIONS (5)
  - Flushing [Unknown]
  - Feeling cold [Unknown]
  - Palpitations [Unknown]
  - Gait disturbance [Unknown]
  - Erythema [Unknown]

NARRATIVE: CASE EVENT DATE: 2016
